FAERS Safety Report 13030005 (Version 4)
Quarter: 2017Q3

REPORT INFORMATION
  Report Type: Report from Study
  Country: US (occurrence: US)
  Receive Date: 20161215
  Receipt Date: 20170811
  Transmission Date: 20171127
  Serious: Yes (Hospitalization)
  Sender: FDA-Public Use
  Company Number: US-BIOGEN-2016BI00329139

PATIENT
  Age: 61 Year
  Sex: Female

DRUGS (1)
  1. TYSABRI [Suspect]
     Active Substance: NATALIZUMAB
     Indication: MULTIPLE SCLEROSIS
     Route: 065
     Dates: start: 20160724, end: 20161017

REACTIONS (4)
  - General physical health deterioration [Unknown]
  - Social avoidant behaviour [Unknown]
  - Speech disorder [Unknown]
  - Asthenia [Unknown]

NARRATIVE: CASE EVENT DATE: 2016
